FAERS Safety Report 9324071 (Version 1)
Quarter: 2013Q2

REPORT INFORMATION
  Report Type: Spontaneous
  Country: AT (occurrence: AT)
  Receive Date: 20130603
  Receipt Date: 20130603
  Transmission Date: 20140414
  Serious: Yes (Death, Other)
  Sender: FDA-Public Use
  Company Number: AT-SANOFI-AVENTIS-2013SA052639

PATIENT
  Age: 72 Year
  Sex: Female
  Weight: 78.7 kg

DRUGS (22)
  1. ZALTRAP [Suspect]
     Indication: NEOPLASM
     Route: 042
     Dates: start: 20130322
  2. ZALTRAP [Suspect]
     Indication: NEOPLASM
     Route: 042
     Dates: start: 20130409
  3. ZALTRAP [Suspect]
     Indication: NEOPLASM
     Route: 042
     Dates: start: 20130503
  4. 5-FU [Suspect]
     Indication: NEOPLASM
     Route: 042
     Dates: start: 20130322
  5. 5-FU [Suspect]
     Indication: NEOPLASM
     Route: 042
     Dates: start: 20130409
  6. 5-FU [Suspect]
     Indication: NEOPLASM
     Route: 042
     Dates: start: 20130503
  7. IRINOTECAN [Suspect]
     Indication: NEOPLASM
     Route: 042
     Dates: start: 20130322
  8. IRINOTECAN [Suspect]
     Indication: NEOPLASM
     Route: 042
     Dates: start: 20130409
  9. IRINOTECAN [Suspect]
     Indication: NEOPLASM
     Route: 042
     Dates: start: 20130503
  10. FOLINIC ACID [Suspect]
     Indication: NEOPLASM
     Route: 042
     Dates: start: 20130322
  11. FOLINIC ACID [Suspect]
     Indication: NEOPLASM
     Route: 042
     Dates: start: 20130409
  12. FOLINIC ACID [Suspect]
     Indication: NEOPLASM
     Route: 042
     Dates: start: 20130503
  13. SIMVASTATIN [Concomitant]
  14. LYRICA [Concomitant]
  15. KEPPRA [Concomitant]
     Indication: EPILEPSY
     Dosage: DOSE: 2 X 1000
  16. BLOPRESS PLUS [Concomitant]
     Dosage: 16 MG/12.5 MG
  17. LASIX [Concomitant]
  18. PANTOLOC [Concomitant]
  19. THROMBO ASS [Concomitant]
  20. SOLUTIONS FOR PARENTERAL NUTRITION [Concomitant]
  21. TAZONAM [Concomitant]
     Dosage: 4.5 G
  22. DIFLUCAN [Concomitant]

REACTIONS (5)
  - Grand mal convulsion [Fatal]
  - Haematochezia [Unknown]
  - Anaemia [Unknown]
  - Pyrexia [Unknown]
  - C-reactive protein increased [Unknown]
